FAERS Safety Report 23396624 (Version 1)
Quarter: 2024Q1

REPORT INFORMATION
  Report Type: Spontaneous
  Country: CN (occurrence: CN)
  Receive Date: 20240112
  Receipt Date: 20240112
  Transmission Date: 20240409
  Serious: Yes (Other)
  Sender: FDA-Public Use
  Company Number: CN-ORGANON-O2401CHN000954

PATIENT
  Age: 30 Year
  Sex: Female
  Weight: 63.6 kg

DRUGS (10)
  1. FOLLITROPIN BETA [Suspect]
     Active Substance: FOLLITROPIN BETA
     Indication: Superovulation
     Dosage: SUBCUTANEOUS INJECTION, 120IU, QD
     Route: 058
     Dates: start: 20231215, end: 20231224
  2. FOLLITROPIN BETA [Suspect]
     Active Substance: FOLLITROPIN BETA
  3. MENOTROPINS [Suspect]
     Active Substance: MENOTROPINS
     Indication: Superovulation
     Dosage: INTRAMUSCULAR INJECTION, 75 IU, QD
     Route: 030
     Dates: start: 20231220, end: 20231226
  4. MENOTROPINS [Suspect]
     Active Substance: MENOTROPINS
     Dosage: INTRAMUSCULAR INJECTION, 150IU, QD
     Route: 030
     Dates: start: 20231227, end: 20231227
  5. FOLLITROPIN ALFA [Suspect]
     Active Substance: FOLLITROPIN ALFA
     Indication: Superovulation
     Dosage: SUBCUTANEOUS INJECTION, 75IU, QD
     Route: 058
     Dates: start: 20231225, end: 20231225
  6. LUTROPIN ALFA [Suspect]
     Active Substance: LUTROPIN ALFA
     Indication: Superovulation
     Dosage: SUBCUTANEOUS INJECTION, 75IU, QD
     Route: 058
     Dates: start: 20231225, end: 20231226
  7. CHORIOGONADOTROPIN ALFA [Suspect]
     Active Substance: CHORIOGONADOTROPIN ALFA
     Indication: Superovulation
     Dosage: SUBCUTANEOUS INJECTION, 250UG, QD
     Route: 058
     Dates: start: 20231227, end: 20231227
  8. SODIUM CHLORIDE [Concomitant]
     Active Substance: SODIUM CHLORIDE
     Dosage: INTRAMUSCULAR INJECTION, 2ML, QD
     Route: 030
     Dates: start: 20231220, end: 20231226
  9. SODIUM CHLORIDE [Concomitant]
     Active Substance: SODIUM CHLORIDE
     Dosage: INTRAMUSCULAR INJECTION, 2 ML, QD
     Route: 030
     Dates: start: 20231227, end: 20231227
  10. STERILE WATER [Concomitant]
     Active Substance: WATER
     Dosage: SUBCUTANEOUS INJECTION, 1ML, QD
     Route: 058
     Dates: start: 20231225, end: 20231225

REACTIONS (5)
  - Ovarian hyperstimulation syndrome [Recovering/Resolving]
  - Abdominal distension [Recovering/Resolving]
  - Abdominal pain [Recovering/Resolving]
  - Dizziness [Recovering/Resolving]
  - Nausea [Recovering/Resolving]

NARRATIVE: CASE EVENT DATE: 20231229
